FAERS Safety Report 23420084 (Version 2)
Quarter: 2024Q1

REPORT INFORMATION
  Report Type: Spontaneous
  Country: US (occurrence: US)
  Receive Date: 20240119
  Receipt Date: 20240131
  Transmission Date: 20240410
  Serious: Yes (Death, Other)
  Sender: FDA-Public Use
  Company Number: US-ABBVIE-5595875

PATIENT
  Age: 71 Year
  Sex: Male
  Weight: 158 kg

DRUGS (8)
  1. RINVOQ [Suspect]
     Active Substance: UPADACITINIB
     Indication: Rheumatoid arthritis
     Dosage: FORM STRENGTH: 15MG
     Route: 048
     Dates: start: 20230615, end: 20240101
  2. PREDNISONE [Concomitant]
     Active Substance: PREDNISONE
     Indication: Product used for unknown indication
     Dosage: FORM STRENGTH: 5MG?FREQUENCY TEXT: TAKE ONE TO TWO TABLETS BY MOUTH DAILY
  3. FUROSEMIDE [Concomitant]
     Active Substance: FUROSEMIDE
     Indication: Product used for unknown indication
     Dosage: FORM STRENGTH: 40MG
  4. ELIQUIS [Concomitant]
     Active Substance: APIXABAN
     Indication: Product used for unknown indication
  5. METFORMIN [Concomitant]
     Active Substance: METFORMIN HYDROCHLORIDE
     Indication: Product used for unknown indication
     Dosage: FORM STRENGTH: 1000MG
  6. METHOTREXATE [Concomitant]
     Active Substance: METHOTREXATE
     Indication: Product used for unknown indication
     Dosage: FORM STRENGTH: 2.5MG?FREQUENCY TEXT:  UPTO 10 TABLETS PO WEEKLY
  7. METOPROLOL SUCCINATE [Concomitant]
     Active Substance: METOPROLOL SUCCINATE
     Indication: Product used for unknown indication
     Dosage: FORM STRENGTH: 200MG
  8. FOLIC ACID [Concomitant]
     Active Substance: FOLIC ACID
     Indication: Product used for unknown indication
     Dosage: FREQUENCY TEXT: TAKE ONE TABLET DAILY

REACTIONS (5)
  - Death [Fatal]
  - Hepatic steatosis [Unknown]
  - Metastatic malignant melanoma [Unknown]
  - Dyspnoea [Unknown]
  - Malignant pleural effusion [Unknown]

NARRATIVE: CASE EVENT DATE: 20240101
